FAERS Safety Report 7211405-8 (Version None)
Quarter: 2010Q4

REPORT INFORMATION
  Report Type: 
  Country: None (occurrence: None)
  Receive Date: 20101223
  Receipt Date: 20101208
  Transmission Date: 20110411
  Serious: Yes (Hospitalization, Other)
  Sender: FDA-Public Use
  Company Number: 1000017642

PATIENT
  Age: 66 Year
  Sex: Male

DRUGS (5)
  1. CITALOPRAM HYDROBROMIDE [Suspect]
     Dosage: 20 MG (20 MG, 1 IN 1 D), ORAL
     Route: 048
     Dates: start: 19980103
  2. AMITRIPTYLINE HYDROCHLORIDE [Suspect]
     Dosage: 75 MG (1 IN 1 D), ORAL; 125 MG, ORAL; 150 MG, ORAL
     Route: 048
     Dates: start: 19971223, end: 19971224
  3. AMITRIPTYLINE HYDROCHLORIDE [Suspect]
     Dosage: 75 MG (1 IN 1 D), ORAL; 125 MG, ORAL; 150 MG, ORAL
     Route: 048
     Dates: start: 19971225, end: 19971227
  4. AMITRIPTYLINE HYDROCHLORIDE [Suspect]
     Dosage: 75 MG (1 IN 1 D), ORAL; 125 MG, ORAL; 150 MG, ORAL
     Route: 048
     Dates: start: 19971228, end: 19980101
  5. EUNERPAN (MELPERONE HYDROCHLORIDE) (MELPERONE HYDROCHLORIDE) [Concomitant]

REACTIONS (6)
  - EXCORIATION [None]
  - IMPULSIVE BEHAVIOUR [None]
  - INTENTIONAL SELF-INJURY [None]
  - MENTAL DISORDER [None]
  - RESTLESSNESS [None]
  - SUICIDE ATTEMPT [None]
